FAERS Safety Report 5092990-1 (Version None)
Quarter: 2006Q3

REPORT INFORMATION
  Report Type: 
  Country: None (occurrence: None)
  Receive Date: 20060830
  Receipt Date: 20060821
  Transmission Date: 20061208
  Serious: Yes (Hospitalization)
  Sender: FDA-Public Use
  Company Number: FR-GLAXOSMITHKLINE-B0434881A

PATIENT
  Age: 16 Year
  Sex: Male
  Weight: 89 kg

DRUGS (3)
  1. ZOVIRAX [Suspect]
     Indication: MENINGOENCEPHALITIS HERPETIC
     Dosage: 900MG THREE TIMES PER DAY
     Route: 042
     Dates: start: 20060726
  2. ACETAMINOPHEN [Concomitant]
  3. DAFALGAN [Concomitant]

REACTIONS (4)
  - INJECTION SITE ERYTHEMA [None]
  - INJECTION SITE PAIN [None]
  - INJECTION SITE REACTION [None]
  - INJECTION SITE VESICLES [None]
